FAERS Safety Report 6916651-6 (Version None)
Quarter: 2010Q3

REPORT INFORMATION
  Report Type: 
  Country: None (occurrence: None)
  Receive Date: 20100810
  Receipt Date: 20100729
  Transmission Date: 20110219
  Serious: Yes (Hospitalization)
  Sender: FDA-Public Use
  Company Number: JP-ROCHE-713148

PATIENT
  Sex: Female
  Weight: 46 kg

DRUGS (3)
  1. ACTEMRA [Suspect]
     Indication: RHEUMATOID ARTHRITIS
     Dosage: FORM: INJECTION
     Route: 041
     Dates: start: 20100521, end: 20100521
  2. ACTEMRA [Suspect]
     Dosage: DISCONTINUED.
     Route: 041
     Dates: start: 20100611, end: 20100611
  3. RHEUMATREX [Suspect]
     Indication: RHEUMATOID ARTHRITIS
     Dosage: NOTE: ONCE A WEEK: 6 MG AND ONCE A WEEK: 2 MG.
     Route: 048
     Dates: start: 20080301, end: 20100628

REACTIONS (3)
  - EOSINOPHIL COUNT INCREASED [None]
  - HEPATIC FUNCTION ABNORMAL [None]
  - INTERSTITIAL LUNG DISEASE [None]
